FAERS Safety Report 5762114-3 (Version None)
Quarter: 2008Q2

REPORT INFORMATION
  Report Type: 
  Country: None (occurrence: None)
  Receive Date: 20080604
  Receipt Date: 20080520
  Transmission Date: 20081010
  Serious: Yes (Other)
  Sender: FDA-Public Use
  Company Number: 8033003

PATIENT
  Age: 34 Year
  Sex: Male

DRUGS (4)
  1. PREDNISOLONE [Suspect]
     Dates: start: 19960801, end: 20020101
  2. PREDNISOLONE [Suspect]
     Dates: end: 20040101
  3. PREDNISOLONE [Suspect]
     Dosage: 5 MG 1/D;
  4. CYCLOSPORINE [Suspect]
     Indication: RENAL TRANSPLANT
     Dates: end: 19960801

REACTIONS (4)
  - DIFFUSE LARGE B-CELL LYMPHOMA STAGE I [None]
  - EPSTEIN-BARR VIRUS INFECTION [None]
  - HODGKIN'S DISEASE MIXED CELLULARITY STAGE UNSPECIFIED [None]
  - RENAL IMPAIRMENT [None]
